FAERS Safety Report 9378153 (Version 2)
Quarter: 2013Q4

REPORT INFORMATION
  Report Type: Spontaneous
  Country: GB (occurrence: GB)
  Receive Date: 20130701
  Receipt Date: 20131209
  Transmission Date: 20140711
  Serious: Yes (Hospitalization)
  Sender: FDA-Public Use
  Company Number: GB-GLAXOSMITHKLINE-B0902598A

PATIENT
  Age: 63 Year
  Sex: Male

DRUGS (3)
  1. AVANDIA [Suspect]
     Indication: TYPE 2 DIABETES MELLITUS
     Route: 048
     Dates: start: 2003
  2. METFORMIN [Concomitant]
     Dosage: 1G THREE TIMES PER DAY
     Route: 048
  3. GLICLAZIDE [Concomitant]
     Dosage: 160MG TWICE PER DAY
     Route: 048

REACTIONS (1)
  - Acute myocardial infarction [Unknown]
